FAERS Safety Report 4654146-3 (Version None)
Quarter: 2005Q2

REPORT INFORMATION
  Report Type: 
  Country: None (occurrence: None)
  Receive Date: 20050404
  Receipt Date: 20041214
  Transmission Date: 20051028
  Serious: No
  Sender: FDA-Public Use
  Company Number: USA041286186

PATIENT
  Age: 25 Year
  Sex: Male

DRUGS (4)
  1. CYMBALTA (DULOEXTINE HYDROCHLORIDE) [Suspect]
     Dosage: 60 MG IN THE MORNING
     Dates: start: 20041201
  2. ZYPREXA [Concomitant]
  3. LAMICTAL [Concomitant]
  4. HYDROXYZINE [Concomitant]

REACTIONS (3)
  - CRYING [None]
  - EMOTIONAL DISORDER [None]
  - FEELING OF RELAXATION [None]
